FAERS Safety Report 14227751 (Version 1)
Quarter: 2017Q4

REPORT INFORMATION
  Report Type: Spontaneous
  Country: US (occurrence: US)
  Receive Date: 20171127
  Receipt Date: 20171127
  Transmission Date: 20180321
  Serious: Yes (Other)
  Sender: FDA-Public Use
  Company Number: US-CELGENEUS-USA-20171103382

PATIENT
  Age: 44 Year
  Sex: Female
  Weight: 99.88 kg

DRUGS (3)
  1. REVLIMID [Suspect]
     Active Substance: LENALIDOMIDE
     Indication: MYELODYSPLASTIC SYNDROME
     Dosage: 10 MILLIGRAM
     Route: 048
     Dates: start: 20170803, end: 20171025
  2. MELATONIN [Concomitant]
     Active Substance: MELATONIN
     Indication: INSOMNIA
     Route: 065
  3. ACETAMINOPHEN. [Concomitant]
     Active Substance: ACETAMINOPHEN
     Indication: PAIN
     Route: 065

REACTIONS (1)
  - Neutropenia [Recovered/Resolved]

NARRATIVE: CASE EVENT DATE: 20171023
